FAERS Safety Report 21232590 (Version 1)
Quarter: 2022Q3

REPORT INFORMATION
  Report Type: Spontaneous
  Country: US (occurrence: US)
  Receive Date: 20220819
  Receipt Date: 20220819
  Transmission Date: 20221027
  Serious: No
  Sender: FDA-Public Use
  Company Number: US-drreddys-SPO/USA/22/0153333

PATIENT
  Age: 31 Year
  Sex: Female

DRUGS (4)
  1. MEMANTINE HYDROCHLORIDE [Suspect]
     Active Substance: MEMANTINE HYDROCHLORIDE
     Indication: Catatonia
  2. AMANTADINE [Suspect]
     Active Substance: AMANTADINE
     Indication: Catatonia
  3. LORAZEPAM [Concomitant]
     Active Substance: LORAZEPAM
     Indication: Catatonia
  4. LORAZEPAM [Concomitant]
     Active Substance: LORAZEPAM
     Dosage: FURTHER INCREASE

REACTIONS (1)
  - Agitation [Unknown]
